FAERS Safety Report 9742576 (Version 1)
Quarter: 2013Q4

REPORT INFORMATION
  Report Type: Spontaneous
  Country: US (occurrence: US)
  Receive Date: 20131210
  Receipt Date: 20131210
  Transmission Date: 20140711
  Serious: No
  Sender: FDA-Public Use
  Company Number: US-GILEAD-2009-0024513

PATIENT
  Sex: Male
  Weight: 116.57 kg

DRUGS (9)
  1. LETAIRIS [Suspect]
     Indication: PULMONARY ARTERIAL HYPERTENSION
     Route: 048
     Dates: start: 20090901
  2. REVATIO [Concomitant]
  3. REMODULIN [Concomitant]
  4. FUROSEMIDE [Concomitant]
  5. PREDNISONE [Concomitant]
  6. POTASSIUM CHLORIDE [Concomitant]
  7. MULTIVITAMIN [Concomitant]
  8. STOOL SOFTENER [Concomitant]
  9. TYLENOL PM EX-STRENGTH [Concomitant]

REACTIONS (1)
  - Fluid retention [Unknown]
